FAERS Safety Report 14552727 (Version 1)
Quarter: 2018Q1

REPORT INFORMATION
  Report Type: Spontaneous
  Country: US (occurrence: US)
  Receive Date: 20180220
  Receipt Date: 20180220
  Transmission Date: 20180509
  Serious: Yes (Hospitalization)
  Sender: FDA-Public Use
  Company Number: US-BAYER-2017-248079

PATIENT
  Age: 70 Year
  Sex: Male

DRUGS (3)
  1. ACETYLSALICYLIC ACID({=100 MG) [Suspect]
     Active Substance: ASPIRIN
     Indication: ARTERIOSCLEROSIS
     Dosage: 81 MG, UNK
     Route: 065
     Dates: end: 20150510
  2. XARELTO [Suspect]
     Active Substance: RIVAROXABAN
     Indication: ATRIAL FLUTTER
     Dosage: 20 MG, QD
     Route: 048
     Dates: start: 20150303, end: 20150510
  3. ACETYLSALICYLIC ACID({=100 MG) [Suspect]
     Active Substance: ASPIRIN
     Indication: ARTERIOSCLEROSIS
     Dosage: 81 MG, UNK
     Route: 065
     Dates: start: 201505

REACTIONS (5)
  - Off label use [Unknown]
  - Product use in unapproved indication [Unknown]
  - Hypotension [Unknown]
  - Acute kidney injury [Recovering/Resolving]
  - Diverticulum intestinal haemorrhagic [Recovering/Resolving]

NARRATIVE: CASE EVENT DATE: 20150303
